FAERS Safety Report 4677850-X (Version None)
Quarter: 2005Q2

REPORT INFORMATION
  Report Type: 
  Country: None (occurrence: None)
  Receive Date: 20050527
  Receipt Date: 20050527
  Transmission Date: 20051028
  Serious: Yes (Life-Threatening, Other)
  Sender: FDA-Public Use
  Company Number: None

PATIENT
  Sex: Male

DRUGS (1)
  1. BACTRIM [Suspect]
     Indication: ACNE
     Dosage: 800 /160 TABS BID
     Dates: start: 20050304, end: 20050405

REACTIONS (8)
  - BURNING SENSATION [None]
  - DRY SKIN [None]
  - ERYTHEMA [None]
  - FACE OEDEMA [None]
  - HEADACHE [None]
  - MALAISE [None]
  - PYREXIA [None]
  - RASH [None]
